FAERS Safety Report 15143256 (Version 2)
Quarter: 2018Q3

REPORT INFORMATION
  Report Type: Spontaneous
  Country: ES (occurrence: ES)
  Receive Date: 20180713
  Receipt Date: 20180723
  Transmission Date: 20181010
  Serious: Yes (Death, Other)
  Sender: FDA-Public Use
  Company Number: ES-BAYER-2018-132380

PATIENT
  Age: 61 Year
  Sex: Male

DRUGS (4)
  1. NEXAVAR [Suspect]
     Active Substance: SORAFENIB
     Indication: MEDULLARY THYROID CANCER
     Dosage: 400 MG, BID
     Route: 048
  2. VANDETANIB. [Concomitant]
     Active Substance: VANDETANIB
     Dosage: 300 MG, QD
  3. NEXAVAR [Suspect]
     Active Substance: SORAFENIB
     Indication: MEDULLARY THYROID CANCER
     Dosage: 400 MG, QD
     Route: 048
  4. NEXAVAR [Suspect]
     Active Substance: SORAFENIB
     Indication: MEDULLARY THYROID CANCER
     Dosage: 400 MG, BID
     Route: 048

REACTIONS (6)
  - Medullary thyroid cancer [Unknown]
  - Metastases to liver [Fatal]
  - Lymphadenopathy mediastinal [Unknown]
  - Palmar-plantar erythrodysaesthesia syndrome [Unknown]
  - Metastases to lung [Fatal]
  - Asthenia [Unknown]
